FAERS Safety Report 24037271 (Version 2)
Quarter: 2024Q3

REPORT INFORMATION
  Report Type: Spontaneous
  Country: US (occurrence: US)
  Receive Date: 20240702
  Receipt Date: 20240805
  Transmission Date: 20241016
  Serious: Yes (Death, Other)
  Sender: GENMAB
  Company Number: US-GENMAB-2024-02199

PATIENT
  Age: 49 Year
  Sex: Male
  Weight: 73.2 kg

DRUGS (20)
  1. EPKINLY [Suspect]
     Active Substance: EPCORITAMAB-BYSP
     Indication: Diffuse large B-cell lymphoma
     Dosage: C1D1
     Route: 065
     Dates: start: 20240604
  2. EPKINLY [Suspect]
     Active Substance: EPCORITAMAB-BYSP
     Dosage: C1D8
     Route: 065
     Dates: start: 20240611
  3. EPKINLY [Suspect]
     Active Substance: EPCORITAMAB-BYSP
     Dosage: C1D15
     Route: 065
     Dates: start: 20240618
  4. GRANIX [Concomitant]
     Active Substance: TBO-FILGRASTIM
     Dosage: 300 MICROGRAM, QD (LAST GIVEN ON 24-JUN-2024 AT 1147)
     Route: 058
     Dates: end: 20240624
  5. ACYCLOVIR [Concomitant]
     Active Substance: ACYCLOVIR
     Dosage: 800 MILLIGRAM, Q12H (LAST GIVEN ON 24-JUN-2024 AT 0904)
     Route: 048
     Dates: end: 20240624
  6. MICAFUNGIN [Concomitant]
     Active Substance: MICAFUNGIN SODIUM
     Dosage: 100 MILLIGRAM, QD- (LAST GIVEN ON 24-JUN-2024 AT 1705)
     Route: 042
     Dates: end: 20240624
  7. CEFEPIME [Concomitant]
     Active Substance: CEFEPIME HYDROCHLORIDE
     Dosage: 2 GRAM, Q8H LAST GIVEN ON 24-JUN-2024 AT 0751)
     Route: 042
     Dates: end: 20240624
  8. MEROPENEM [Concomitant]
     Active Substance: MEROPENEM
     Dosage: 1 GRAM, Q8H (LAST GIVEN ON 24-JUN-2024 AT 2203)
     Route: 042
     Dates: start: 20240624, end: 20240624
  9. VANCOMYCIN [Concomitant]
     Active Substance: VANCOMYCIN
     Dosage: 1.750 MILLIGRAM, Q12H LAST GIVEN ON 24-JUN-2024 AT 2202)
     Route: 042
     Dates: start: 20240624, end: 20240624
  10. FUROSEMIDE [Concomitant]
     Active Substance: FUROSEMIDE
     Dosage: 20 MILLIGRAM, BID LAST GIVEN ON 24-JUN-2024 AT 1517)
     Route: 042
     Dates: start: 20240624, end: 20240624
  11. SODIUM CHLORIDE [Concomitant]
     Active Substance: SODIUM CHLORIDE
     Dosage: 2 GRAM, TID LAST GIVEN ON 24-JUN-2024 AT 1434)
     Route: 048
     Dates: end: 20240624
  12. METOPROLOL [Concomitant]
     Active Substance: METOPROLOL
     Dosage: 25 MILLIGRAM, BID LAST GIVEN ON 24-JUN-2024 AT 2205)
     Route: 048
     Dates: end: 20240624
  13. LISINOPRIL [Concomitant]
     Active Substance: LISINOPRIL
     Dosage: 20 MILLIGRAM DAILY LAST GIVEN ON 24-JUN-2024 AT 0904)
     Route: 048
     Dates: end: 20240624
  14. PANTOPRAZOLE [Concomitant]
     Active Substance: PANTOPRAZOLE
     Dosage: 40 MILLIGRAM, QD LAST GIVEN ON 24-JUN-2024 AT 0904)
     Route: 048
     Dates: end: 20240624
  15. DESFERAL [Concomitant]
     Active Substance: DEFEROXAMINE MESYLATE
     Indication: Red blood cell transfusion
     Dosage: 2 GRAM, PRN LAST GIVEN ON 24-JUN-2024 AT 0812)
     Route: 042
     Dates: end: 20240622
  16. LEVOTHYROXINE [Concomitant]
     Active Substance: LEVOTHYROXINE\LEVOTHYROXINE SODIUM
     Dosage: 100 MICROGRAM DAILY LAST GIVEN ON 24-JUN-2024 AT 0525)
     Route: 048
     Dates: end: 20240624
  17. CALCIUM GLUCONATE [Concomitant]
     Active Substance: CALCIUM GLUCONATE
     Dosage: 2 GRAM AS DIRECTED LAST GIVEN ON 24-JUN-2024 AT 1439) CALCIUM (REPLACEMENT ALGORITHM)
     Route: 042
     Dates: end: 20240616
  18. MAGNESIUM [Concomitant]
     Active Substance: MAGNESIUM
     Dosage: 4 GRAM AS DIRECTED LAST GIVEN ON 24-JUN-2024 AT 0525) MAGNESIUM (REPLACEMENT ALGORITHM)
     Route: 042
     Dates: end: 20240624
  19. SODIUM PHOSPHATES [SODIUM PHOSPHATE] [Concomitant]
     Dosage: 20 MMOL AS DIRECTED LAST GIVEN ON 24-JUN-2024 AT 1146) PHOSPHORUS (REPLACEMENT ALGORITHM)
     Route: 042
     Dates: end: 20240624
  20. MICRO K [Concomitant]
     Dosage: 20 MILLIEQUIVALENT AS DIRECTED LAST GIVEN ON 24-JUN-2024 AT 1819) POTASSIUM (REPLACEMENT ALGORITHM)
     Route: 065
     Dates: end: 20240624

REACTIONS (4)
  - Haemorrhage intracranial [Fatal]
  - Serum ferritin increased [Unknown]
  - Cytokine release syndrome [Unknown]
  - Blood fibrinogen decreased [Unknown]

NARRATIVE: CASE EVENT DATE: 20240611
